FAERS Safety Report 6058063-6 (Version None)
Quarter: 2009Q1

REPORT INFORMATION
  Report Type: 
  Country: None (occurrence: None)
  Receive Date: 20090127
  Receipt Date: 20090112
  Transmission Date: 20090719
  Serious: Yes (Other)
  Sender: FDA-Public Use
  Company Number: 232952K08USA

PATIENT
  Age: 55 Year
  Sex: Male
  Weight: 78 kg

DRUGS (4)
  1. REBIF [Suspect]
     Indication: MULTIPLE SCLEROSIS
     Dosage: 44 MCG, 3 IN 1 WEEKS, SUBCUTANEOUS
     Route: 058
     Dates: start: 20080409
  2. DILANTIN (PHENYTOIN/0017401) [Concomitant]
  3. TEGRETOL [Concomitant]
  4. PHENOBARBITAL TAB [Concomitant]

REACTIONS (3)
  - ABDOMINAL PAIN [None]
  - HEPATIC CIRRHOSIS [None]
  - MASS [None]
